FAERS Safety Report 10991015 (Version 2)
Quarter: 2015Q3

REPORT INFORMATION
  Report Type: Spontaneous
  Country: US (occurrence: US)
  Receive Date: 20150406
  Receipt Date: 20150709
  Transmission Date: 20151125
  Serious: Yes (Hospitalization)
  Sender: FDA-Public Use
  Company Number: US-BAYER-2015-103643

PATIENT
  Age: 27 Year
  Sex: Female
  Weight: 108.84 kg

DRUGS (2)
  1. TRIAMTERENE AND HYDROCHLOROTHIAZID [Concomitant]
     Active Substance: HYDROCHLOROTHIAZIDE\TRIAMTERENE
     Dosage: 5/25MG
     Route: 048
     Dates: start: 20120511
  2. MIRENA [Suspect]
     Active Substance: LEVONORGESTREL
     Indication: CONTRACEPTION
     Dosage: 20 MCG/24HR, CONT
     Route: 015
     Dates: start: 20080326, end: 20120518

REACTIONS (6)
  - Abdominal pain [Not Recovered/Not Resolved]
  - Embedded device [None]
  - Abdominal discomfort [None]
  - Injury [None]
  - Device dislocation [None]
  - Device issue [None]

NARRATIVE: CASE EVENT DATE: 20080326
